FAERS Safety Report 17221535 (Version 2)
Quarter: 2021Q3

REPORT INFORMATION
  Report Type: Other
  Country: JP (occurrence: JP)
  Receive Date: 20200101
  Receipt Date: 20210924
  Transmission Date: 20211014
  Serious: Yes (Other)
  Sender: FDA-Public Use
  Company Number: JP-ROCHE-2486909

PATIENT
  Age: 67 Year
  Sex: Female
  Weight: 54 kg

DRUGS (22)
  1. OBINUTUZUMAB. [Suspect]
     Active Substance: OBINUTUZUMAB
     Route: 041
     Dates: start: 20190314
  2. OBINUTUZUMAB. [Suspect]
     Active Substance: OBINUTUZUMAB
     Route: 041
     Dates: start: 20190514
  3. OBINUTUZUMAB. [Suspect]
     Active Substance: OBINUTUZUMAB
     Route: 041
     Dates: start: 20200804, end: 20200804
  4. OBINUTUZUMAB. [Suspect]
     Active Substance: OBINUTUZUMAB
     Route: 041
     Dates: start: 20210511, end: 20210511
  5. OBINUTUZUMAB. [Suspect]
     Active Substance: OBINUTUZUMAB
     Route: 041
     Dates: start: 20190611
  6. OBINUTUZUMAB. [Suspect]
     Active Substance: OBINUTUZUMAB
     Route: 041
     Dates: start: 20200929, end: 20200929
  7. OBINUTUZUMAB. [Suspect]
     Active Substance: OBINUTUZUMAB
     Indication: FOLLICULAR LYMPHOMA
     Route: 041
     Dates: start: 20190213
  8. OBINUTUZUMAB. [Suspect]
     Active Substance: OBINUTUZUMAB
     Route: 041
     Dates: start: 20190220
  9. OBINUTUZUMAB. [Suspect]
     Active Substance: OBINUTUZUMAB
     Route: 041
     Dates: start: 20190416
  10. OBINUTUZUMAB. [Suspect]
     Active Substance: OBINUTUZUMAB
     Route: 041
     Dates: start: 20200414, end: 20200414
  11. OBINUTUZUMAB. [Suspect]
     Active Substance: OBINUTUZUMAB
     Route: 041
     Dates: start: 20210119, end: 20210119
  12. OBINUTUZUMAB. [Suspect]
     Active Substance: OBINUTUZUMAB
     Route: 041
     Dates: start: 20190709
  13. OBINUTUZUMAB. [Suspect]
     Active Substance: OBINUTUZUMAB
     Route: 041
     Dates: start: 20190903
  14. OBINUTUZUMAB. [Suspect]
     Active Substance: OBINUTUZUMAB
     Route: 041
     Dates: start: 20191029
  15. OBINUTUZUMAB. [Suspect]
     Active Substance: OBINUTUZUMAB
     Route: 041
     Dates: start: 20201124, end: 20201124
  16. OBINUTUZUMAB. [Suspect]
     Active Substance: OBINUTUZUMAB
     Route: 041
     Dates: start: 20190227
  17. OBINUTUZUMAB. [Suspect]
     Active Substance: OBINUTUZUMAB
     Route: 041
     Dates: start: 20200609, end: 20200609
  18. OBINUTUZUMAB. [Suspect]
     Active Substance: OBINUTUZUMAB
     Route: 041
     Dates: start: 20191224, end: 20191224
  19. OBINUTUZUMAB. [Suspect]
     Active Substance: OBINUTUZUMAB
     Route: 041
     Dates: start: 20200218, end: 20200218
  20. OBINUTUZUMAB. [Suspect]
     Active Substance: OBINUTUZUMAB
     Route: 041
     Dates: start: 20210316, end: 20210316
  21. TREAKISYM [Suspect]
     Active Substance: BENDAMUSTINE HYDROCHLORIDE
     Indication: FOLLICULAR LYMPHOMA
     Dosage: DOSAGE IS UNCERTAIN.
     Route: 041
     Dates: start: 20190214, end: 20190710
  22. FILGRASTIM [Concomitant]
     Active Substance: FILGRASTIM

REACTIONS (1)
  - Myelosuppression [Recovered/Resolved]

NARRATIVE: CASE EVENT DATE: 20190729
